FAERS Safety Report 10185243 (Version 1)
Quarter: 2014Q2

REPORT INFORMATION
  Report Type: Report from Study
  Country: CO (occurrence: CO)
  Receive Date: 20140521
  Receipt Date: 20140521
  Transmission Date: 20141212
  Serious: Yes (Hospitalization)
  Sender: FDA-Public Use
  Company Number: CO-SA-2014SA061266

PATIENT
  Age: 66 Year
  Sex: Female

DRUGS (2)
  1. LANTUS [Suspect]
     Indication: DIABETES MELLITUS
     Dosage: DOSE:54 UNIT(S)
     Route: 058
     Dates: start: 201403
  2. APIDRA [Suspect]
     Indication: DIABETES MELLITUS
     Dosage: DOSE: 20 UNITS AM, 16 UNITS PM, 16 UNITS PM
     Route: 058
     Dates: start: 201403

REACTIONS (4)
  - Gastroenteritis [Recovered/Resolved]
  - Abdominal pain [Recovered/Resolved]
  - Dehydration [Recovered/Resolved]
  - Hypoglycaemia [Recovered/Resolved]
